FAERS Safety Report 13922308 (Version 5)
Quarter: 2018Q1

REPORT INFORMATION
  Report Type: Report from Study
  Country: US (occurrence: US)
  Receive Date: 20170830
  Receipt Date: 20180201
  Transmission Date: 20180508
  Serious: Yes (Hospitalization)
  Sender: FDA-Public Use
  Company Number: US-MALLINCKRODT-T201702542

PATIENT
  Sex: Male

DRUGS (2)
  1. REPOSITORY CORTICOTROPIN INJECTION [Suspect]
     Active Substance: CORTICOTROPIN
     Dosage: 20 UNITS / 0.25 ML, 2 TIMES PER WEEK
     Route: 058
     Dates: end: 20171016
  2. REPOSITORY CORTICOTROPIN INJECTION [Suspect]
     Active Substance: CORTICOTROPIN
     Indication: POLYMYOSITIS
     Dosage: 40 UNITS / 0.5 ML, 1 TIME WEEKLY
     Route: 058
     Dates: start: 20161029

REACTIONS (13)
  - Malaise [Unknown]
  - Nonspecific reaction [Unknown]
  - Renal failure [Unknown]
  - Asthenia [Not Recovered/Not Resolved]
  - Fatigue [Not Recovered/Not Resolved]
  - Abdominal distension [Not Recovered/Not Resolved]
  - Pulmonary oedema [Not Recovered/Not Resolved]
  - Oedema peripheral [Not Recovered/Not Resolved]
  - Fluid retention [Not Recovered/Not Resolved]
  - Blood creatine phosphokinase increased [Recovering/Resolving]
  - Weight increased [Not Recovered/Not Resolved]
  - Wound drainage [Unknown]
  - Drug dose omission [Unknown]
